FAERS Safety Report 23654211 (Version 1)
Quarter: 2024Q1

REPORT INFORMATION
  Report Type: Spontaneous
  Country: EG (occurrence: EG)
  Receive Date: 20240320
  Receipt Date: 20240320
  Transmission Date: 20240410
  Serious: Yes (Other)
  Sender: FDA-Public Use
  Company Number: EG-CIPLA LTD.-2024EG02775

PATIENT

DRUGS (4)
  1. BLEOMYCIN SULFATE [Suspect]
     Active Substance: BLEOMYCIN SULFATE
     Indication: Hodgkin^s disease
     Dosage: (15 UNITS), (EVERY 15 DAYS)
     Route: 042
     Dates: start: 20231226
  2. ADRIACIN [Suspect]
     Active Substance: DOXORUBICIN HYDROCHLORIDE
     Indication: Hodgkin^s disease
     Dosage: (47.5 MG), (EVERY 15 DAYS)
     Route: 042
     Dates: start: 20231226
  3. VINCRISTINE SULFATE [Suspect]
     Active Substance: VINCRISTINE SULFATE
     Indication: Hodgkin^s disease
     Dosage: (1.4 MG), (EVERY 15 DAYS)
     Route: 042
     Dates: start: 20231226
  4. DACARBAZINE CITRATE [Suspect]
     Active Substance: DACARBAZINE CITRATE
     Indication: Hodgkin^s disease
     Dosage: (712.5 MG), (EVERY 15 DAYS)
     Route: 042
     Dates: start: 20231226

REACTIONS (1)
  - Neutropenia [Unknown]

NARRATIVE: CASE EVENT DATE: 20240109
